FAERS Safety Report 26154171 (Version 1)
Quarter: 2025Q4

REPORT INFORMATION
  Report Type: Spontaneous
  Country: GB (occurrence: GB)
  Receive Date: 20251215
  Receipt Date: 20251215
  Transmission Date: 20260117
  Serious: Yes (Other)
  Sender: TEVA
  Company Number: GB-MHRA-37857701

PATIENT

DRUGS (5)
  1. DIAZEPAM [Suspect]
     Active Substance: DIAZEPAM
     Indication: Anxiety
     Dosage: PRESCRIBED ON 26TH OF NOVEMBER, AFTER TAKING THE TABLET OF WHICH I CUT IN HALF FOR A LOWER DOSAGE.
     Route: 065
  2. TRAMADOL [Concomitant]
     Active Substance: TRAMADOL
     Indication: Product used for unknown indication
  3. ARIPIPRAZOLE [Concomitant]
     Active Substance: ARIPIPRAZOLE
     Indication: Product used for unknown indication
  4. OLANZAPINE [Concomitant]
     Active Substance: OLANZAPINE
     Indication: Product used for unknown indication
  5. DULOXETINE [Concomitant]
     Active Substance: DULOXETINE
     Indication: Product used for unknown indication

REACTIONS (7)
  - Paralysis [Unknown]
  - Skin odour abnormal [Unknown]
  - Apallic syndrome [Unknown]
  - Malaise [Unknown]
  - Tremor [Unknown]
  - Toxicity to various agents [Unknown]
  - Vision blurred [Unknown]
